FAERS Safety Report 7788737-8 (Version None)
Quarter: 2011Q3

REPORT INFORMATION
  Report Type: 
  Country: None (occurrence: None)
  Receive Date: 20110928
  Receipt Date: 20110915
  Transmission Date: 20111222
  Serious: Yes (Hospitalization, Disabling, Other)
  Sender: FDA-Public Use
  Company Number: AUR-APL-2011-05161

PATIENT
  Sex: Female

DRUGS (12)
  1. PLAVIX [Concomitant]
  2. AMOXICILLIN [Suspect]
     Indication: ANTIBIOTIC PROPHYLAXIS
     Dosage: 1000 MG
  3. ALUDROX SA TAB [Suspect]
     Indication: ANTACID THERAPY
  4. ACETYLSALICYLIC ACID (ACETYLSALICYCLIC ACID) [Concomitant]
  5. PRILOSEC [Suspect]
     Indication: PRODUCT USED FOR UNKNOWN INDICATION
     Dates: start: 20090901
  6. LISINOPRIL [Concomitant]
  7. SPIRONOLACTONE [Concomitant]
  8. OMEPRAZOLE [Suspect]
     Indication: PRODUCT USED FOR UNKNOWN INDICATION
     Dates: start: 20090101
  9. PEPCID [Suspect]
     Indication: PRODUCT USED FOR UNKNOWN INDICATION
     Dates: start: 20090701
  10. DOCUSATE (DOCUSATE) [Concomitant]
  11. FUROSEMIDE [Concomitant]
  12. LOVASTATIN [Concomitant]

REACTIONS (11)
  - DECREASED APPETITE [None]
  - ABDOMINAL PAIN UPPER [None]
  - DRUG HYPERSENSITIVITY [None]
  - DRUG INEFFECTIVE [None]
  - MALAISE [None]
  - DEHYDRATION [None]
  - DISBACTERIOSIS [None]
  - DRUG INTOLERANCE [None]
  - DYSPEPSIA [None]
  - ELECTROLYTE IMBALANCE [None]
  - APHAGIA [None]
